FAERS Safety Report 14612979 (Version 3)
Quarter: 2019Q1

REPORT INFORMATION
  Report Type: Spontaneous
  Country: US (occurrence: US)
  Receive Date: 20180308
  Receipt Date: 20190128
  Transmission Date: 20190417
  Serious: Yes (Other)
  Sender: FDA-Public Use
  Company Number: US-PFIZER INC-2017096481

PATIENT
  Age: 13 Year
  Sex: Male
  Weight: 36 kg

DRUGS (11)
  1. GENOTROPIN [Suspect]
     Active Substance: SOMATROPIN
     Dosage: 3.2 MG, 1X/DAY
     Dates: start: 201309
  2. VITAMIN D3 [Concomitant]
     Active Substance: CHOLECALCIFEROL
     Dosage: UNK
  3. QVAR [Concomitant]
     Active Substance: BECLOMETHASONE DIPROPIONATE
     Dosage: UNK
  4. CALTRATE [Concomitant]
     Active Substance: CALCIUM CARBONATE
     Dosage: UNK
  5. METHYLPHENIDATE. [Concomitant]
     Active Substance: METHYLPHENIDATE
     Indication: ATTENTION DEFICIT/HYPERACTIVITY DISORDER
     Dosage: 36 MG, 1X/DAY
  6. GENOTROPIN [Suspect]
     Active Substance: SOMATROPIN
     Dosage: 3.0 MG, DAILY
     Route: 058
  7. CYPROHEPTADINE. [Concomitant]
     Active Substance: CYPROHEPTADINE
     Indication: APPETITE DISORDER
     Dosage: 4 MG, 1X/DAY
  8. ZOLPIDEX [Concomitant]
     Active Substance: ZOLPIDEM TARTRATE
     Dosage: UNK
  9. SINGULAIR [Concomitant]
     Active Substance: MONTELUKAST SODIUM
     Dosage: UNK
  10. GENOTROPIN [Suspect]
     Active Substance: SOMATROPIN
     Indication: BODY HEIGHT BELOW NORMAL
     Dosage: UNK
  11. GENOTROPIN [Suspect]
     Active Substance: SOMATROPIN
     Dosage: 2.8 MG, UNK

REACTIONS (4)
  - Wrong technique in device usage process [Unknown]
  - Sarcoidosis [Unknown]
  - Incorrect dose administered [Unknown]
  - Product dose omission [Unknown]
